FAERS Safety Report 13204506 (Version 1)
Quarter: 2017Q1

REPORT INFORMATION
  Report Type: Spontaneous
  Country: US (occurrence: US)
  Receive Date: 20170208
  Receipt Date: 20170208
  Transmission Date: 20170428
  Serious: Yes (Other)
  Sender: FDA-Public Use
  Company Number: None

PATIENT
  Age: 11 Year
  Sex: Female
  Weight: 56.75 kg

DRUGS (5)
  1. ARIPIPRAZOLE 5 MG AJANTA PHARMA [Suspect]
     Active Substance: ARIPIPRAZOLE
     Indication: ANXIETY
     Route: 048
     Dates: start: 201301, end: 20170127
  2. ARIPIPRAZOLE 5 MG AJANTA PHARMA [Suspect]
     Active Substance: ARIPIPRAZOLE
     Indication: POST-TRAUMATIC STRESS DISORDER
     Route: 048
     Dates: start: 201301, end: 20170127
  3. ABILIFY [Concomitant]
     Active Substance: ARIPIPRAZOLE
  4. ARIPIPRAZOLE 5 MG AJANTA PHARMA [Suspect]
     Active Substance: ARIPIPRAZOLE
     Indication: DEPRESSION
     Route: 048
     Dates: start: 201301, end: 20170127
  5. ARIPIPRAZOLE 5 MG AJANTA PHARMA [Suspect]
     Active Substance: ARIPIPRAZOLE
     Indication: BIPOLAR DISORDER
     Route: 048
     Dates: start: 201301, end: 20170127

REACTIONS (16)
  - Dissociation [None]
  - Body temperature increased [None]
  - Alopecia [None]
  - Product substitution issue [None]
  - Posturing [None]
  - Irritability [None]
  - Fear [None]
  - Dizziness [None]
  - Drug ineffective [None]
  - Confusional state [None]
  - Fatigue [None]
  - Condition aggravated [None]
  - Aggression [None]
  - Akathisia [None]
  - Disease recurrence [None]
  - Anger [None]

NARRATIVE: CASE EVENT DATE: 20170113
